FAERS Safety Report 7693808-0 (Version None)
Quarter: 2011Q3

REPORT INFORMATION
  Report Type: 
  Country: None (occurrence: None)
  Receive Date: 20110819
  Receipt Date: 20110726
  Transmission Date: 20111222
  Serious: No
  Sender: FDA-Public Use
  Company Number: US-ALLERGAN-1110112US

PATIENT
  Age: 59 Year
  Sex: Female

DRUGS (2)
  1. LASTACAFT [Suspect]
     Indication: EYE PRURITUS
  2. LASTACAFT [Suspect]
     Indication: SEASONAL ALLERGY
     Dosage: USED TWICE
     Route: 047
     Dates: start: 20110722

REACTIONS (5)
  - LACRIMATION INCREASED [None]
  - EYELID OEDEMA [None]
  - EYE PAIN [None]
  - EYE SWELLING [None]
  - CONJUNCTIVAL OEDEMA [None]
